FAERS Safety Report 8292431-7 (Version None)
Quarter: 2012Q2

REPORT INFORMATION
  Report Type: 
  Country: None (occurrence: None)
  Receive Date: 20120417
  Receipt Date: 20120410
  Transmission Date: 20120825
  Serious: Yes (Other)
  Sender: FDA-Public Use
  Company Number: IE-FRI-1000029585

PATIENT
  Sex: Male

DRUGS (3)
  1. LEXAPRO [Suspect]
     Indication: DEPRESSION
     Dosage: 5 MG
     Route: 048
     Dates: start: 20111001, end: 20120101
  2. NEXIUM [Concomitant]
     Dates: start: 20120101
  3. LEXAPRO [Suspect]
     Dosage: 10 MG
     Route: 048
     Dates: start: 20120101

REACTIONS (1)
  - LIVER FUNCTION TEST ABNORMAL [None]
